FAERS Safety Report 20909653 (Version 1)
Quarter: 2022Q2

REPORT INFORMATION
  Report Type: Spontaneous
  Country: US (occurrence: US)
  Receive Date: 20220603
  Receipt Date: 20220603
  Transmission Date: 20220721
  Serious: No
  Sender: FDA-Public Use
  Company Number: US-OTSUKA-2022_023907

PATIENT
  Sex: Male
  Weight: 85 kg

DRUGS (3)
  1. SAMSCA [Suspect]
     Active Substance: TOLVAPTAN
     Indication: Hyponatraemia
     Dosage: UNK
     Route: 065
  2. DEMECLOCYCLINE [Concomitant]
     Active Substance: DEMECLOCYCLINE
     Indication: Hyponatraemia
     Dosage: 30 MG, BID
     Route: 065
  3. SALT [Concomitant]
     Active Substance: SODIUM CHLORIDE
     Indication: Hyponatraemia
     Dosage: 1 MG, TID
     Route: 065

REACTIONS (4)
  - Drug withdrawal syndrome [Unknown]
  - Therapy interrupted [Unknown]
  - Insurance issue [Unknown]
  - Therapeutic response decreased [Unknown]
